FAERS Safety Report 9109119 (Version 1)
Quarter: 2013Q1

REPORT INFORMATION
  Report Type: Spontaneous
  Country: US (occurrence: US)
  Receive Date: 20130222
  Receipt Date: 20130222
  Transmission Date: 20140127
  Serious: Yes (Other)
  Sender: FDA-Public Use
  Company Number: US-UCBSA-078401

PATIENT
  Age: 24 Year
  Sex: Female

DRUGS (2)
  1. CIMZIA [Suspect]
     Indication: RHEUMATOID ARTHRITIS
     Dosage: UNKNOWN DOSE
  2. PREDNISONE [Concomitant]
     Dosage: INTERMITTENT ROUNDS

REACTIONS (2)
  - Cervix carcinoma [Unknown]
  - Rheumatoid arthritis [Unknown]
